FAERS Safety Report 4787303-6 (Version None)
Quarter: 2005Q3

REPORT INFORMATION
  Report Type: 
  Country: None (occurrence: None)
  Receive Date: 20050930
  Receipt Date: 20050920
  Transmission Date: 20060218
  Serious: Yes (Death, Hospitalization)
  Sender: FDA-Public Use
  Company Number: HQ5842112JAN2001

PATIENT
  Age: 60 Year
  Sex: Male
  Weight: 72 kg

DRUGS (11)
  1. MYLOTARG [Suspect]
     Indication: ACUTE MYELOID LEUKAEMIA
     Dosage: 4 MG/M^2, INTRAVENOUS
     Route: 042
     Dates: start: 20001219, end: 20001219
  2. MYLOTARG [Suspect]
     Indication: ACUTE MYELOID LEUKAEMIA
     Dosage: 4 MG/M^2, INTRAVENOUS
     Route: 042
     Dates: start: 20010102, end: 20010102
  3. PREDNISONE [Concomitant]
  4. MYCOPHENOLATE MOFETIL (MYCOPHENOLATE MOFETIL) [Concomitant]
  5. DAPSONE [Concomitant]
  6. CIPROFLOXACIN [Concomitant]
  7. VALACYCLOVIR HCL [Concomitant]
  8. CYCLOSPORINE [Concomitant]
  9. PRILOSEC [Concomitant]
  10. G-CSF (GRANULOCYTE COLONY STIMULATING FACTOR) [Concomitant]
  11. AMPHOTERICIN B [Concomitant]

REACTIONS (13)
  - ASPIRATION [None]
  - CEREBRAL HAEMORRHAGE [None]
  - CONFUSIONAL STATE [None]
  - CYTOMEGALOVIRUS INFECTION [None]
  - DISEASE PROGRESSION [None]
  - DISORIENTATION [None]
  - EPISTAXIS [None]
  - HAEMATOCRIT DECREASED [None]
  - HAEMOGLOBIN DECREASED [None]
  - NEUTROPENIA [None]
  - PLATELET COUNT DECREASED [None]
  - PNEUMONIA ASPERGILLUS [None]
  - WHITE BLOOD CELL COUNT DECREASED [None]
